FAERS Safety Report 9044170 (Version 1)
Quarter: 2013Q1

REPORT INFORMATION
  Report Type: Report from Study
  Country: US (occurrence: US)
  Receive Date: 20130130
  Receipt Date: 20130130
  Transmission Date: 20140127
  Serious: No
  Sender: FDA-Public Use
  Company Number: US-ABBOTT-12P-163-0955100-00

PATIENT
  Sex: Female
  Weight: 86.26 kg

DRUGS (11)
  1. HUMIRA 40 MG/0.8 ML PEN [Suspect]
     Indication: RHEUMATOID ARTHRITIS
     Dates: start: 20120420
  2. METHOTREXATE [Concomitant]
     Indication: RHEUMATOID ARTHRITIS
  3. PREMARIN [Concomitant]
     Indication: MENOPAUSE
  4. VITAMIN D [Concomitant]
     Indication: VITAMIN SUPPLEMENTATION
  5. SINEMET [Concomitant]
     Indication: THYROID DISORDER
  6. FOLIC ACID [Concomitant]
     Indication: RHEUMATOID ARTHRITIS
  7. PREDNISONE [Concomitant]
     Indication: RHEUMATOID ARTHRITIS
  8. AMITRIPTYLINE [Concomitant]
     Indication: MENIERE^S DISEASE
  9. CARVEDILOL [Concomitant]
     Indication: HYPERTENSION
  10. GLUCOSAMINE [Concomitant]
     Indication: MEDICAL DIET
  11. ASPIRIN [Concomitant]
     Indication: PROPHYLAXIS

REACTIONS (3)
  - Abdominal pain upper [Not Recovered/Not Resolved]
  - Diarrhoea [Not Recovered/Not Resolved]
  - Headache [Recovered/Resolved]
